FAERS Safety Report 17202952 (Version 1)
Quarter: 2019Q4

REPORT INFORMATION
  Report Type: Spontaneous
  Country: US (occurrence: US)
  Receive Date: 20191226
  Receipt Date: 20191226
  Transmission Date: 20200122
  Serious: Yes (Other)
  Sender: FDA-Public Use
  Company Number: US-PFIZER INC-2019554414

PATIENT
  Sex: Female

DRUGS (2)
  1. SIROLIMUS. [Suspect]
     Active Substance: SIROLIMUS
     Dosage: UNK
  2. RUXOLITINIB [Suspect]
     Active Substance: RUXOLITINIB
     Dosage: UNK

REACTIONS (2)
  - Blood triglycerides increased [Unknown]
  - Pancreatitis [Unknown]
